FAERS Safety Report 8998584 (Version 1)
Quarter: 2013Q1

REPORT INFORMATION
  Report Type: Spontaneous
  Country: GR (occurrence: GR)
  Receive Date: 20130103
  Receipt Date: 20130103
  Transmission Date: 20140127
  Serious: Yes (Other)
  Sender: FDA-Public Use
  Company Number: GR-BRISTOL-MYERS SQUIBB COMPANY-17242868

PATIENT
  Sex: Female

DRUGS (1)
  1. MEGACE [Suspect]
     Indication: OVARIAN CANCER
     Route: 048

REACTIONS (1)
  - Tumour marker increased [Unknown]
